FAERS Safety Report 23813713 (Version 1)
Quarter: 2024Q2

REPORT INFORMATION
  Report Type: Spontaneous
  Country: US (occurrence: US)
  Receive Date: 20240503
  Receipt Date: 20240503
  Transmission Date: 20240716
  Serious: No
  Sender: FDA-Public Use
  Company Number: US-JNJFOC-20240464306

PATIENT
  Age: 60 Year
  Sex: Female

DRUGS (2)
  1. TYLENOL 8 HR ARTHRITIS PAIN [Suspect]
     Active Substance: ACETAMINOPHEN
     Indication: Arthralgia
     Route: 065
     Dates: start: 202403
  2. TYLENOL 8 HR ARTHRITIS PAIN [Suspect]
     Active Substance: ACETAMINOPHEN
     Indication: Pain

REACTIONS (1)
  - Off label use [Unknown]

NARRATIVE: CASE EVENT DATE: 20240301
